FAERS Safety Report 4333022-X (Version None)
Quarter: 2004Q2

REPORT INFORMATION
  Report Type: 
  Country: None (occurrence: None)
  Receive Date: 20040406
  Receipt Date: 20030815
  Transmission Date: 20050107
  Serious: Yes (Other)
  Sender: FDA-Public Use
  Company Number: PHEH2003US07420

PATIENT
  Age: 39 Year
  Sex: Female
  Weight: 68 kg

DRUGS (8)
  1. ZOMETA [Suspect]
     Indication: BREAST CANCER METASTATIC
     Dosage: 4 MG, QMO
     Route: 042
     Dates: start: 20020207, end: 20030630
  2. ADRIAMYCIN PFS [Concomitant]
     Indication: BREAST CANCER METASTATIC
     Dosage: 80 MG, UNK
     Route: 042
     Dates: start: 20020226, end: 20020712
  3. CYTOXAN [Concomitant]
     Indication: BREAST CANCER METASTATIC
     Dosage: 800 MG, UNK
     Route: 042
     Dates: start: 20020226, end: 20020712
  4. TAXOTERE [Concomitant]
     Indication: BREAST CANCER METASTATIC
  5. FEMARA [Concomitant]
     Indication: BREAST CANCER METASTATIC
     Dosage: 2.5 MG, UNK
     Route: 048
     Dates: start: 20020130
  6. COUMADIN [Concomitant]
     Indication: PROPHYLAXIS
     Dosage: 1 MG, UNK
     Route: 048
     Dates: start: 20020328
  7. DECADRON [Concomitant]
     Indication: SPINAL CORD COMPRESSION
     Dosage: UNK, UNK
     Dates: start: 20020130, end: 20020712
  8. TAMOXIFEN CITRATE [Concomitant]

REACTIONS (2)
  - ASEPTIC NECROSIS BONE [None]
  - OSTEONECROSIS [None]
